FAERS Safety Report 5016450-9 (Version None)
Quarter: 2006Q2

REPORT INFORMATION
  Report Type: 
  Country: None (occurrence: None)
  Receive Date: 20060531
  Receipt Date: 20060531
  Transmission Date: 20061013
  Serious: Yes (Other)
  Sender: FDA-Public Use
  Company Number: None

PATIENT
  Age: 49 Year
  Sex: Male
  Weight: 94 kg

DRUGS (2)
  1. DEPODUR [Suspect]
     Indication: HIP ARTHROPLASTY
     Dosage: 10 MG X1 EPIDURAL
     Route: 008
     Dates: start: 20060503, end: 20060505
  2. MORPHINE [Suspect]
     Dosage: 47 MG X1 IV
     Route: 042
     Dates: start: 20060503, end: 20060505

REACTIONS (7)
  - APNOEA [None]
  - CONVULSION [None]
  - DEPRESSED LEVEL OF CONSCIOUSNESS [None]
  - DYSKINESIA [None]
  - HYPOVENTILATION [None]
  - OXYGEN SATURATION DECREASED [None]
  - RESPIRATORY RATE DECREASED [None]
